FAERS Safety Report 4280017-0 (Version None)
Quarter: 2004Q1

REPORT INFORMATION
  Report Type: 
  Country: None (occurrence: None)
  Receive Date: 20040121
  Receipt Date: 20040116
  Transmission Date: 20041129
  Serious: Yes (Hospitalization, Other)
  Sender: FDA-Public Use
  Company Number: DE-JNJFOC-20031104868

PATIENT
  Age: 49 Year
  Sex: Female

DRUGS (2)
  1. DOXORUBICIN HYDROCHLORIDE [Suspect]
     Indication: OVARIAN CANCER
     Dosage: 45 MG, 1 IN 4 WEEK, INTRAVENOUS
     Route: 042
     Dates: start: 20031024, end: 20031121
  2. CONTRAST DYE (CONTRAST MEDIA) [Suspect]
     Indication: COMPUTERISED TOMOGRAM
     Dates: start: 20030101, end: 20031028

REACTIONS (5)
  - ANAEMIA [None]
  - DEHYDRATION [None]
  - GAMMA-GLUTAMYLTRANSFERASE INCREASED [None]
  - MALIGNANT NEOPLASM PROGRESSION [None]
  - VOMITING [None]
